FAERS Safety Report 16534388 (Version 1)
Quarter: 2019Q3

REPORT INFORMATION
  Report Type: Spontaneous
  Country: US (occurrence: US)
  Receive Date: 20190704
  Receipt Date: 20190704
  Transmission Date: 20191004
  Serious: Yes (Disabling, Other)
  Sender: FDA-Public Use
  Company Number: None

PATIENT
  Age: 69 Year
  Sex: Female
  Weight: 63.9 kg

DRUGS (9)
  1. ATENOLOL. [Concomitant]
     Active Substance: ATENOLOL
  2. GLIMEPIRIDE. [Concomitant]
     Active Substance: GLIMEPIRIDE
  3. CLARITIN [Concomitant]
     Active Substance: LORATADINE
  4. HERB TEA [Concomitant]
  5. MISOPROSTOL. [Suspect]
     Active Substance: MISOPROSTOL
     Indication: BIOPSY
     Dosage: ?          QUANTITY:2 TABLET(S);?
     Route: 067
     Dates: start: 20190702, end: 20190703
  6. XANAX [Concomitant]
     Active Substance: ALPRAZOLAM
  7. SIMVASTATIN. [Concomitant]
     Active Substance: SIMVASTATIN
  8. MULTI VITAMINS [Concomitant]
     Active Substance: VITAMINS
  9. FLUTICASONE. [Concomitant]
     Active Substance: FLUTICASONE

REACTIONS (10)
  - Chills [None]
  - Dizziness [None]
  - Blood glucose increased [None]
  - Asthenia [None]
  - Nausea [None]
  - Burning sensation [None]
  - Malaise [None]
  - Pyrexia [None]
  - Diarrhoea [None]
  - Headache [None]

NARRATIVE: CASE EVENT DATE: 20190703
